FAERS Safety Report 9554939 (Version 2)
Quarter: 2013Q4

REPORT INFORMATION
  Report Type: Spontaneous
  Country: JP (occurrence: JP)
  Receive Date: 20130926
  Receipt Date: 20131029
  Transmission Date: 20140711
  Serious: Yes (Hospitalization)
  Sender: FDA-Public Use
  Company Number: JP-AMGEN-JPNSP2013067482

PATIENT
  Age: 65 Year
  Sex: Female
  Weight: 31 kg

DRUGS (10)
  1. PRALIA [Suspect]
     Indication: BONE DENSITY DECREASED
     Dosage: 60 MG, UNK
     Route: 058
     Dates: start: 20130806, end: 20130806
  2. PRALIA [Suspect]
     Indication: OSTEOPOROSIS
  3. ARTIST [Concomitant]
     Indication: HYPERTENSION
     Route: 065
     Dates: start: 20130611, end: 20130924
  4. FEBURIC [Concomitant]
     Indication: HYPERURICAEMIA
     Dosage: 10 MG, UNK
     Route: 065
     Dates: start: 20130611
  5. SODIUM BICARBONATE [Concomitant]
     Indication: BLOOD URIC ACID INCREASED
     Dosage: 4.5 G, TID
     Route: 065
     Dates: start: 20130611
  6. ZOLPIDEM TARTRATE [Concomitant]
     Indication: INSOMNIA
     Dosage: 5 MG, QD
     Route: 065
     Dates: start: 20130611
  7. AMIYU                              /02028601/ [Concomitant]
     Indication: RENAL FAILURE
     Dosage: 3 DF, TID
     Route: 065
     Dates: start: 20130611
  8. APINORAKUTON [Concomitant]
     Indication: HYPERTENSION
     Dosage: 25 MG, QD
     Route: 065
     Dates: start: 20130831, end: 20130911
  9. FUROSEMIDE [Concomitant]
     Indication: RENAL FAILURE
     Dosage: 1 DF, QD
     Route: 065
     Dates: start: 20130611
  10. ASPARA-CA [Concomitant]
     Indication: HYPOCALCAEMIA
     Dosage: 600 MG, TID
     Route: 065
     Dates: start: 20130917

REACTIONS (1)
  - Hypocalcaemia [Not Recovered/Not Resolved]
